FAERS Safety Report 13151439 (Version 1)
Quarter: 2017Q1

REPORT INFORMATION
  Report Type: Spontaneous
  Country: US (occurrence: US)
  Receive Date: 20170125
  Receipt Date: 20170125
  Transmission Date: 20170428
  Serious: No
  Sender: FDA-Public Use
  Company Number: US-KADMON PHARMACEUTICALS, LLC-KAD201502-000242

PATIENT
  Age: 27 Year
  Sex: Female
  Weight: 61.2 kg

DRUGS (7)
  1. RIBASPHERE RIBAPAK [Suspect]
     Active Substance: RIBAVIRIN
  2. TERBUTALINE [Concomitant]
     Active Substance: TERBUTALINE
     Indication: PREMATURE LABOUR
     Dates: start: 20150705, end: 20150705
  3. NORCO [Concomitant]
     Active Substance: ACETAMINOPHEN\HYDROCODONE BITARTRATE
     Indication: INTERVERTEBRAL DISC DEGENERATION
     Dosage: TABLET
  4. SOVALDI [Suspect]
     Active Substance: SOFOSBUVIR
  5. PRENATAL GUMMIES [Concomitant]
     Indication: SUPPLEMENTATION THERAPY
     Dates: start: 20140131
  6. PEGINTRON [Suspect]
     Active Substance: PEGINTERFERON ALFA-2B
  7. PROCARDIA [Concomitant]
     Active Substance: NIFEDIPINE
     Indication: PREMATURE LABOUR
     Dates: start: 20150705, end: 201509

REACTIONS (2)
  - Exposure via partner [Unknown]
  - Maternal exposure before pregnancy [Unknown]

NARRATIVE: CASE EVENT DATE: 201501
